FAERS Safety Report 11645057 (Version 2)
Quarter: 2015Q4

REPORT INFORMATION
  Report Type: Other
  Country: MX (occurrence: MX)
  Receive Date: 20151020
  Receipt Date: 20151026
  Transmission Date: 20160304
  Serious: Yes (Hospitalization)
  Sender: FDA-Public Use
  Company Number: MX-SHIRE-MX201512872

PATIENT
  Age: 6 Year
  Sex: Male
  Weight: 18 kg

DRUGS (1)
  1. ELAPRASE [Suspect]
     Active Substance: IDURSULFASE
     Indication: MUCOPOLYSACCHARIDOSIS II
     Dosage: (0.5KGXWEIGHT) UNK, 1X/WEEK (EVERY 8 DAYS)
     Route: 041
     Dates: start: 20150522

REACTIONS (5)
  - Nausea [Recovered/Resolved]
  - Pallor [Recovered/Resolved]
  - Vomiting [Recovered/Resolved]
  - Tremor [Recovered/Resolved]
  - Infusion related reaction [Recovered/Resolved]

NARRATIVE: CASE EVENT DATE: 20151009
